FAERS Safety Report 15714740 (Version 2)
Quarter: 2019Q2

REPORT INFORMATION
  Report Type: Spontaneous
  Country: US (occurrence: US)
  Receive Date: 20181212
  Receipt Date: 20190430
  Transmission Date: 20190711
  Serious: Yes (Hospitalization)
  Sender: FDA-Public Use
  Company Number: US-PFIZER INC-2018220194

PATIENT
  Age: 56 Year
  Sex: Male

DRUGS (2)
  1. LYRICA [Suspect]
     Active Substance: PREGABALIN
     Indication: PAIN
     Dosage: 300 MG, UNK (4-5 DAYS)
  2. LYRICA [Suspect]
     Active Substance: PREGABALIN
     Dosage: 600 MG, 1X/DAY

REACTIONS (7)
  - Panic disorder [Unknown]
  - Depression [Unknown]
  - Feeling abnormal [Unknown]
  - Product use issue [Unknown]
  - Anxiety [Unknown]
  - Intentional dose omission [Unknown]
  - Muscle discomfort [Unknown]
